FAERS Safety Report 6506710-4 (Version None)
Quarter: 2009Q4

REPORT INFORMATION
  Report Type: 
  Country: None (occurrence: None)
  Receive Date: 20091221
  Receipt Date: 20091216
  Transmission Date: 20100525
  Serious: Yes (Hospitalization)
  Sender: FDA-Public Use
  Company Number: FR-WYE-G05162609

PATIENT
  Sex: Male
  Weight: 12 kg

DRUGS (2)
  1. ADVIL LIQUI-GELS [Suspect]
     Indication: PYREXIA
     Dosage: UNKNOWN
     Route: 048
     Dates: start: 20090828, end: 20090901
  2. ADVIL LIQUI-GELS [Suspect]
     Indication: GAIT DISTURBANCE

REACTIONS (7)
  - CONDITION AGGRAVATED [None]
  - EPIPHYSEAL INJURY [None]
  - INCREASED BRONCHIAL SECRETION [None]
  - JOINT EFFUSION [None]
  - OSTEOMYELITIS [None]
  - RHINITIS [None]
  - STAPHYLOCOCCAL INFECTION [None]
